FAERS Safety Report 11945218 (Version 2)
Quarter: 2016Q1

REPORT INFORMATION
  Report Type: Report from Study
  Country: JP (occurrence: JP)
  Receive Date: 20160125
  Receipt Date: 20160310
  Transmission Date: 20160526
  Serious: Yes (Other)
  Sender: FDA-Public Use
  Company Number: JP-EISAI MEDICAL RESEARCH-EC-2016-013697

PATIENT
  Age: 69 Year
  Sex: Female
  Weight: 71 kg

DRUGS (7)
  1. HALAVEN [Suspect]
     Active Substance: ERIBULIN MESYLATE
     Indication: BREAST CANCER RECURRENT
     Route: 041
     Dates: start: 20150324, end: 20150414
  2. RANMARK [Concomitant]
     Active Substance: DENOSUMAB
  3. DEPAS [Concomitant]
     Active Substance: ETIZOLAM
  4. HALAVEN [Suspect]
     Active Substance: ERIBULIN MESYLATE
     Route: 041
     Dates: start: 20150512, end: 20150630
  5. ALOSENN [Concomitant]
     Active Substance: SENNA LEAF
  6. MAGLAX [Concomitant]
     Active Substance: MAGNESIUM OXIDE
  7. ZOMETA [Concomitant]
     Active Substance: ZOLEDRONIC ACID

REACTIONS (1)
  - Osteonecrosis of jaw [Recovering/Resolving]

NARRATIVE: CASE EVENT DATE: 20150512
